FAERS Safety Report 6358560-X (Version None)
Quarter: 2009Q3

REPORT INFORMATION
  Report Type: 
  Country: None (occurrence: None)
  Receive Date: 20090914
  Receipt Date: 20090902
  Transmission Date: 20100115
  Serious: Yes (Hospitalization)
  Sender: FDA-Public Use
  Company Number: HECT-1000067

PATIENT
  Age: 66 Year
  Sex: Female

DRUGS (1)
  1. HECTOROL [Suspect]
     Indication: HYPERPARATHYROIDISM SECONDARY

REACTIONS (1)
  - GASTROSTOMY TUBE INSERTION [None]
